FAERS Safety Report 5848083-6 (Version None)
Quarter: 2008Q3

REPORT INFORMATION
  Report Type: 
  Country: None (occurrence: None)
  Receive Date: 20080814
  Receipt Date: 20080814
  Transmission Date: 20090109
  Serious: No
  Sender: FDA-Public Use
  Company Number: None

PATIENT
  Sex: Female
  Weight: 74.8435 kg

DRUGS (8)
  1. INVEGA [Suspect]
     Indication: PSYCHOTIC DISORDER
     Dosage: 6 MG QHS ORAL
     Route: 048
     Dates: start: 20080429, end: 20080514
  2. CYMBALTA [Concomitant]
  3. METRODINIDAZOLE [Concomitant]
  4. TYLENOL [Concomitant]
  5. TRILEPTAL [Concomitant]
  6. VITAMIN [Concomitant]
  7. ZINC [Concomitant]
  8. PROGESTERONE [Concomitant]

REACTIONS (2)
  - BREAST DISCHARGE [None]
  - HYPERPROLACTINAEMIA [None]
